FAERS Safety Report 13952950 (Version 1)
Quarter: 2017Q3

REPORT INFORMATION
  Report Type: Spontaneous
  Country: DE (occurrence: DE)
  Receive Date: 20170911
  Receipt Date: 20170911
  Transmission Date: 20171128
  Serious: Yes (Other)
  Sender: FDA-Public Use
  Company Number: DE-009507513-1708DEU003282

PATIENT
  Sex: Male
  Weight: 106 kg

DRUGS (3)
  1. NASONEX [Suspect]
     Active Substance: MOMETASONE FUROATE
     Indication: NASAL POLYPS
  2. LORANO [Concomitant]
     Dosage: UNK
  3. NASONEX [Suspect]
     Active Substance: MOMETASONE FUROATE
     Indication: MYCOTIC ALLERGY
     Dosage: 2 PUFFS PER NOSTRIL IN THE MORNING
     Route: 045
     Dates: start: 2007, end: 201708

REACTIONS (6)
  - Anxiety [Recovered/Resolved]
  - Initial insomnia [Recovered/Resolved]
  - Ankylosing spondylitis [Recovered/Resolved with Sequelae]
  - Pain in extremity [Recovered/Resolved]
  - Paraesthesia [Recovered/Resolved]
  - Nightmare [Unknown]

NARRATIVE: CASE EVENT DATE: 201708
